FAERS Safety Report 4982264-9 (Version None)
Quarter: 2006Q2

REPORT INFORMATION
  Report Type: 
  Country: None (occurrence: None)
  Receive Date: 20060425
  Receipt Date: 20060414
  Transmission Date: 20061013
  Serious: Yes (Other)
  Sender: FDA-Public Use
  Company Number: US-JNJFOC-20060304285

PATIENT
  Sex: Female
  Weight: 90.72 kg

DRUGS (12)
  1. REMICADE [Suspect]
     Indication: CROHN'S DISEASE
     Route: 042
     Dates: start: 20050627
  2. ULTRACET [Concomitant]
     Indication: PAIN
  3. SINGULAIR [Concomitant]
     Indication: ASTHMA
     Dosage: DATES OF THERAPY ^YEARS^
  4. SYNTHROID [Concomitant]
     Indication: HYPOTHYROIDISM
     Dosage: DATES OF THERAPY ^YEARS^
  5. NEURONTIN [Concomitant]
     Dosage: DATES OF THERAPY ^YEARS^
  6. PROTONIX [Concomitant]
  7. IMURAN [Concomitant]
     Indication: CROHN'S DISEASE
  8. CELEXA [Concomitant]
     Dosage: DURATION ^YEARS^
  9. URIMAR-T [Concomitant]
  10. ALLEGRA [Concomitant]
  11. ALLEGRA [Concomitant]
  12. LOMOTIL [Concomitant]

REACTIONS (1)
  - BLADDER DISORDER [None]
